FAERS Safety Report 20959334 (Version 1)
Quarter: 2022Q2

REPORT INFORMATION
  Report Type: Spontaneous
  Country: RU (occurrence: None)
  Receive Date: 20220614
  Receipt Date: 20220614
  Transmission Date: 20220721
  Serious: Yes (Other)
  Sender: FDA-Public Use
  Company Number: RU-ROCHE-3112391

PATIENT

DRUGS (1)
  1. ATEZOLIZUMAB [Suspect]
     Active Substance: ATEZOLIZUMAB
     Indication: Lung neoplasm malignant
     Route: 065

REACTIONS (7)
  - Disease progression [Unknown]
  - Peritonitis [Unknown]
  - Asthenia [Unknown]
  - Eastern Cooperative Oncology Group performance status worsened [Unknown]
  - Dyspnoea [Unknown]
  - Ulcer [Unknown]
  - Anaemia [Unknown]

NARRATIVE: CASE EVENT DATE: 20220328
